FAERS Safety Report 20214172 (Version 1)
Quarter: 2021Q4

REPORT INFORMATION
  Report Type: Spontaneous
  Country: GB (occurrence: GB)
  Receive Date: 20211221
  Receipt Date: 20211221
  Transmission Date: 20220303
  Serious: Yes (Hospitalization, Other)
  Sender: FDA-Public Use
  Company Number: None

PATIENT
  Age: 55 Year
  Sex: Female

DRUGS (6)
  1. COMIRNATY [Suspect]
     Active Substance: TOZINAMERAN
     Indication: COVID-19 immunisation
     Dosage: DOSE 3 (BOOSTER), SINGLE
     Dates: start: 20211120, end: 20211120
  2. MEDROXYPROGESTERONE\MEDROXYPROGESTERONE ACETATE [Suspect]
     Active Substance: MEDROXYPROGESTERONE\MEDROXYPROGESTERONE ACETATE
     Indication: Vertigo
     Dosage: UNK
  3. CLOPIDOGREL [Concomitant]
     Active Substance: CLOPIDOGREL BISULFATE
     Indication: Transient ischaemic attack
     Dosage: UNK
     Dates: start: 201206
  4. INFLUENZA VIRUS VACCINE [Concomitant]
     Active Substance: INFLUENZA VIRUS VACCINE
     Dosage: UNK
     Dates: start: 202110
  5. RAMIPRIL [Concomitant]
     Active Substance: RAMIPRIL
     Indication: White coat hypertension
     Dosage: UNK
     Dates: start: 201206
  6. SIMVASTATIN [Concomitant]
     Active Substance: SIMVASTATIN
     Indication: Transient ischaemic attack
     Dosage: UNK
     Dates: start: 201206

REACTIONS (7)
  - Immunisation [Unknown]
  - Facial paralysis [Not Recovered/Not Resolved]
  - Neck pain [Not Recovered/Not Resolved]
  - Headache [Not Recovered/Not Resolved]
  - Vertigo [Not Recovered/Not Resolved]
  - Herpes zoster [Not Recovered/Not Resolved]
  - Herpes zoster oticus [Not Recovered/Not Resolved]

NARRATIVE: CASE EVENT DATE: 20211120
